FAERS Safety Report 5211421-1 (Version None)
Quarter: 2006Q4

REPORT INFORMATION
  Report Type: 
  Country: None (occurrence: None)
  Receive Date: 20061115
  Receipt Date: 20060712
  Transmission Date: 20070319
  Serious: No
  Sender: FDA-Public Use
  Company Number: 200614578BWH

PATIENT
  Age: 78 Year
  Sex: Female

DRUGS (3)
  1. NEXAVAR [Suspect]
     Indication: RENAL CELL CARCINOMA STAGE UNSPECIFIED
     Dosage: 400 MG, BID, ORAL
     Route: 048
     Dates: start: 20060624
  2. ANTIHYPERTENSIVES (NOS) [Concomitant]
  3. EFFEXOR [Concomitant]

REACTIONS (5)
  - DRY MOUTH [None]
  - FLUSHING [None]
  - ORAL PAIN [None]
  - PRURITUS [None]
  - SWELLING FACE [None]
